FAERS Safety Report 4506542-2 (Version None)
Quarter: 2004Q4

REPORT INFORMATION
  Report Type: 
  Country: None (occurrence: None)
  Receive Date: 20041122
  Receipt Date: 20041109
  Transmission Date: 20050328
  Serious: Yes (Hospitalization)
  Sender: FDA-Public Use
  Company Number: FR-BRISTOL-MYERS SQUIBB COMPANY-12759460

PATIENT
  Age: 76 Year
  Sex: Female

DRUGS (2)
  1. CAPTEA [Suspect]
     Indication: ESSENTIAL HYPERTENSION
     Route: 048
     Dates: end: 20021229
  2. INNOHEP INJ [Concomitant]
     Indication: PULMONARY EMBOLISM
     Route: 058
     Dates: start: 20021226, end: 20021229

REACTIONS (9)
  - CARDIO-RESPIRATORY ARREST [None]
  - DEHYDRATION [None]
  - DYSPHAGIA [None]
  - GENERAL PHYSICAL HEALTH DETERIORATION [None]
  - HYPERKALAEMIA [None]
  - PAIN IN EXTREMITY [None]
  - RENAL FAILURE ACUTE [None]
  - RESPIRATORY DISTRESS [None]
  - WEIGHT DECREASED [None]
